FAERS Safety Report 18748031 (Version 1)
Quarter: 2021Q1

REPORT INFORMATION
  Report Type: Spontaneous
  Country: US (occurrence: US)
  Receive Date: 20210115
  Receipt Date: 20210115
  Transmission Date: 20210419
  Serious: Yes (Other)
  Sender: FDA-Public Use
  Company Number: US-TAKEDA-2021TUS000947

PATIENT
  Age: 71 Year
  Sex: Male
  Weight: 60.77 kg

DRUGS (13)
  1. YUPELRI [Concomitant]
     Active Substance: REVEFENACIN
  2. IPRATROPIUM BROMIDE. [Concomitant]
     Active Substance: IPRATROPIUM BROMIDE
  3. MIRTAZAPINE. [Concomitant]
     Active Substance: MIRTAZAPINE
  4. FLECAINIDE [Concomitant]
     Active Substance: FLECAINIDE
  5. OXYGEN. [Concomitant]
     Active Substance: OXYGEN
  6. TAMSULOSIN [Concomitant]
     Active Substance: TAMSULOSIN
  7. BROVANA [Concomitant]
     Active Substance: ARFORMOTEROL TARTRATE
  8. ELIQUIS [Concomitant]
     Active Substance: APIXABAN
  9. KLONOPIN [Concomitant]
     Active Substance: CLONAZEPAM
  10. SYNTHROID [Concomitant]
     Active Substance: LEVOTHYROXINE SODIUM
  11. GAMMAGARD LIQUID [Suspect]
     Active Substance: HUMAN IMMUNOGLOBULIN G
     Indication: IMMUNODEFICIENCY COMMON VARIABLE
     Dosage: 35 GRAM, Q4WEEKS
     Route: 042
     Dates: start: 20181128
  12. METOPROLOL. [Concomitant]
     Active Substance: METOPROLOL
  13. BUDESONIDE. [Concomitant]
     Active Substance: BUDESONIDE

REACTIONS (3)
  - Atrial fibrillation [Unknown]
  - Brain injury [Unknown]
  - Myocardial infarction [Unknown]

NARRATIVE: CASE EVENT DATE: 20201215
